FAERS Safety Report 4583278-3 (Version None)
Quarter: 2005Q1

REPORT INFORMATION
  Report Type: 
  Country: None (occurrence: None)
  Receive Date: 20050125
  Receipt Date: 20041130
  Transmission Date: 20050727
  Serious: No
  Sender: FDA-Public Use
  Company Number: USA040669933

PATIENT
  Age: 83 Year
  Sex: Female
  Weight: 51 kg

DRUGS (5)
  1. FORTEO [Suspect]
     Indication: OSTEOPOROSIS
     Dosage: 20 UG DAY
     Dates: start: 20040301
  2. DILTIAZEM [Concomitant]
  3. LISINOPRIL [Concomitant]
  4. MULTI-VITAMIN [Concomitant]
  5. CALCIUM GLUCONATE [Concomitant]

REACTIONS (4)
  - BLOOD CALCIUM INCREASED [None]
  - DYSPNOEA EXERTIONAL [None]
  - INJECTION SITE PAIN [None]
  - MUSCLE SPASMS [None]
